FAERS Safety Report 14093277 (Version 1)
Quarter: 2017Q4

REPORT INFORMATION
  Report Type: Spontaneous
  Country: US (occurrence: US)
  Receive Date: 20171016
  Receipt Date: 20171016
  Transmission Date: 20180321
  Serious: Yes (Hospitalization, Other)
  Sender: FDA-Public Use
  Company Number: US-LANNETT COMPANY, INC.-US-2017LAN001083

PATIENT
  Age: 63 Year
  Sex: Female

DRUGS (5)
  1. VANCOMYCIN [Concomitant]
     Active Substance: VANCOMYCIN
     Indication: PNEUMONIA FUNGAL
     Dosage: UNK UNK, PRN
     Route: 065
  2. OXYCODONE HYDROCHLORIDE. [Suspect]
     Active Substance: OXYCODONE HYDROCHLORIDE
     Indication: MUSCULOSKELETAL PAIN
     Dosage: 30 MG, EVERY 12 HOURS
     Route: 065
  3. VORICONAZOLE. [Suspect]
     Active Substance: VORICONAZOLE
     Indication: PNEUMONIA FUNGAL
     Dosage: UNK
     Route: 065
  4. OXYCODONE HYDROCHLORIDE. [Suspect]
     Active Substance: OXYCODONE HYDROCHLORIDE
     Dosage: 15-30 MG EVERY 4 HOURS AS NEEDED
     Route: 065
  5. PIPERACILLIN AND TAZOBACTAM [Concomitant]
     Active Substance: PIPERACILLIN SODIUM\TAZOBACTAM SODIUM
     Indication: PNEUMONIA FUNGAL
     Dosage: UNK
     Route: 065

REACTIONS (2)
  - Neurotoxicity [Recovering/Resolving]
  - Drug interaction [Recovering/Resolving]
